FAERS Safety Report 17859392 (Version 1)
Quarter: 2020Q2

REPORT INFORMATION
  Report Type: Spontaneous
  Country: US (occurrence: US)
  Receive Date: 20200603
  Receipt Date: 20200603
  Transmission Date: 20200714
  Serious: No
  Sender: FDA-Public Use
  Company Number: None

PATIENT
  Age: 43 Year
  Sex: Female
  Weight: 74.25 kg

DRUGS (2)
  1. VIT D [Concomitant]
     Active Substance: VITAMIN D NOS
  2. NP THYROID [Suspect]
     Active Substance: LEVOTHYROXINE\LIOTHYRONINE
     Indication: HYPOTHYROIDISM
     Dosage: ?          QUANTITY:1 TABLET(S);?
     Route: 048
     Dates: start: 20200504, end: 20200603

REACTIONS (6)
  - Chest discomfort [None]
  - Temperature intolerance [None]
  - Joint swelling [None]
  - Fatigue [None]
  - Peripheral swelling [None]
  - Heart rate irregular [None]

NARRATIVE: CASE EVENT DATE: 20200602
